FAERS Safety Report 6834152-0 (Version None)
Quarter: 2010Q3

REPORT INFORMATION
  Report Type: 
  Country: None (occurrence: None)
  Receive Date: 20100712
  Receipt Date: 20070807
  Transmission Date: 20110219
  Serious: Yes (Other)
  Sender: FDA-Public Use
  Company Number: US-PFIZER INC-2007031576

PATIENT
  Sex: Female
  Weight: 68.2 kg

DRUGS (2)
  1. CHANTIX [Suspect]
     Indication: SMOKING CESSATION THERAPY
     Route: 048
     Dates: start: 20070219, end: 20070501
  2. TRASTUZUMAB [Concomitant]
     Indication: BREAST CANCER
     Dates: end: 20070307

REACTIONS (4)
  - DIZZINESS [None]
  - HYPERSENSITIVITY [None]
  - RASH PRURITIC [None]
  - STAPHYLOCOCCAL INFECTION [None]
